FAERS Safety Report 6591358-6 (Version None)
Quarter: 2010Q1

REPORT INFORMATION
  Report Type: 
  Country: None (occurrence: None)
  Receive Date: 20100219
  Receipt Date: 20100208
  Transmission Date: 20100710
  Serious: Yes (Other)
  Sender: FDA-Public Use
  Company Number: IN-WATSON-2010-01821

PATIENT
  Age: 45 Year
  Sex: Female

DRUGS (4)
  1. TAMOXIFEN CITRATE [Suspect]
     Indication: BREAST CANCER
     Dosage: 20 MG, DAILY
     Route: 065
  2. EPIRUBICIN HYDROCHLORIDE [Suspect]
     Indication: BREAST CANCER
     Dosage: 50 MG/M2, D1 AND D15 Q4WK FOR 6 CYCLES
  3. FLUOROURACIL [Suspect]
     Indication: BREAST CANCER
     Dosage: 500 MG/M2, D1 AND D15, Q 4 WK FOR 6 CYCLES
  4. CYCLOPHOSPHAMIDE [Suspect]
     Indication: BREAST CANCER
     Dosage: 500 MG/M2, D1 AND D15, Q4 WK FOR 6 CYCLES

REACTIONS (1)
  - T-CELL PROLYMPHOCYTIC LEUKAEMIA [None]
